FAERS Safety Report 21983258 (Version 3)
Quarter: 2023Q1

REPORT INFORMATION
  Report Type: Report from Study
  Country: US (occurrence: US)
  Receive Date: 20230213
  Receipt Date: 20230323
  Transmission Date: 20230418
  Serious: Yes (Other)
  Sender: FDA-Public Use
  Company Number: US-JNJFOC-20230211902

PATIENT
  Age: 38 Year
  Sex: Female

DRUGS (2)
  1. SPRAVATO [Suspect]
     Active Substance: ESKETAMINE
     Indication: Depression
     Dosage: 56 MG, 5 TOTAL DOSES
     Dates: start: 20221214, end: 20221229
  2. SPRAVATO [Suspect]
     Active Substance: ESKETAMINE
     Dosage: 84 MG, 10 TOTAL DOSES
     Dates: start: 20230105, end: 20230203

REACTIONS (12)
  - Nephrolithiasis [Not Recovered/Not Resolved]
  - Vagus nerve disorder [Unknown]
  - Defaecation disorder [Unknown]
  - Constipation [Unknown]
  - Dizziness [Recovered/Resolved]
  - Photophobia [Unknown]
  - Nausea [Recovering/Resolving]
  - Dry mouth [Recovering/Resolving]
  - Taste disorder [Recovering/Resolving]
  - Dissociation [Unknown]
  - Device use issue [Unknown]
  - Underdose [Unknown]

NARRATIVE: CASE EVENT DATE: 20221201
